FAERS Safety Report 8506174-5 (Version None)
Quarter: 2012Q3

REPORT INFORMATION
  Report Type: 
  Country: None (occurrence: None)
  Receive Date: 20120712
  Receipt Date: 20110816
  Transmission Date: 20120928
  Serious: No
  Sender: FDA-Public Use
  Company Number: US-MUTUAL PHARMACEUTICAL COMPANY, INC.-IMPR20110001

PATIENT
  Sex: Female
  Weight: 68.1 kg

DRUGS (3)
  1. IMIPRAMINE HYDROCHLORIDE [Suspect]
     Indication: ANXIETY
     Route: 048
     Dates: start: 20080101
  2. CLONAZEPAM [Suspect]
     Indication: TEMPOROMANDIBULAR JOINT SYNDROME
     Route: 048
     Dates: end: 20110501
  3. IMIPRAMINE HYDROCHLORIDE [Suspect]
     Indication: DEPRESSION

REACTIONS (5)
  - HYPERHIDROSIS [None]
  - SWOLLEN TONGUE [None]
  - HYPOAESTHESIA [None]
  - DRY MOUTH [None]
  - OFF LABEL USE [None]
